FAERS Safety Report 12932978 (Version 1)
Quarter: 2016Q4

REPORT INFORMATION
  Report Type: Spontaneous
  Country: CA (occurrence: CA)
  Receive Date: 20161111
  Receipt Date: 20161111
  Transmission Date: 20170207
  Serious: Yes (Other)
  Sender: FDA-Public Use
  Company Number: CA-PFIZER INC-2016521765

PATIENT
  Sex: Female

DRUGS (1)
  1. CRIZOTINIB [Suspect]
     Active Substance: CRIZOTINIB
     Dosage: UNK, (EARLIER IN THE MORNING AND LATER IN THE EVENING AFTER WHICH SHE WOULD IMMEDIATELY LAY SUPINE)

REACTIONS (1)
  - Erosive oesophagitis [Recovered/Resolved]
